FAERS Safety Report 8446242 (Version 2)
Quarter: 2012Q4

REPORT INFORMATION
  Report Type: 
  Country: US (occurrence: US)
  Receive Date: 20120307
  Receipt Date: 20121130
  Transmission Date: 20130627
  Serious: Yes (Other)
  Sender: FDA-Public Use
  Company Number: PHEH2011US010359

PATIENT
  Sex: Male

DRUGS (3)
  1. GLEEVEC [Suspect]
     Indication: CHRONIC MYELOID LEUKAEMIA
     Dosage: 400 mg, daily
     Route: 048
     Dates: start: 20100429
  2. GLEEVEC [Suspect]
     Dosage: 400 mg, QD
     Route: 048
     Dates: start: 20100723
  3. GLEEVEC [Suspect]
     Dosage: 400 mg, Daily
     Route: 048
     Dates: start: 20120320

REACTIONS (12)
  - Retinal detachment [Unknown]
  - Gastrointestinal carcinoma [Unknown]
  - Second primary malignancy [Unknown]
  - Diarrhoea [Unknown]
  - Pharyngeal oedema [Recovered/Resolved]
  - Dysphonia [Recovered/Resolved]
  - Lip swelling [Recovered/Resolved]
  - Lacrimation increased [Unknown]
  - Muscle spasms [Unknown]
  - Dry eye [Unknown]
  - Eye swelling [Unknown]
  - Bone pain [Unknown]
